FAERS Safety Report 10452665 (Version 2)
Quarter: 2014Q4

REPORT INFORMATION
  Report Type: Spontaneous
  Country: US (occurrence: US)
  Receive Date: 20140915
  Receipt Date: 20141002
  Transmission Date: 20150528
  Serious: Yes (Other)
  Sender: FDA-Public Use
  Company Number: US-PFIZER INC-2014253381

PATIENT
  Age: 58 Year
  Sex: Male

DRUGS (1)
  1. XELJANZ [Suspect]
     Active Substance: TOFACITINIB CITRATE
     Indication: RHEUMATOID ARTHRITIS
     Dosage: 5 MG, 2X/DAY
     Route: 048

REACTIONS (4)
  - Respiratory tract infection [Unknown]
  - Musculoskeletal stiffness [Unknown]
  - Drug dose omission [Unknown]
  - Fatigue [Unknown]

NARRATIVE: CASE EVENT DATE: 201407
